FAERS Safety Report 13910919 (Version 1)
Quarter: 2017Q3

REPORT INFORMATION
  Report Type: Spontaneous
  Country: US (occurrence: None)
  Receive Date: 20170825
  Receipt Date: 20170825
  Transmission Date: 20171127
  Serious: Yes (Hospitalization)
  Sender: FDA-Public Use
  Company Number: None

PATIENT
  Age: 55 Year
  Sex: Male
  Weight: 60.8 kg

DRUGS (1)
  1. MEMANTINE HYDROCHLORIDE. [Suspect]
     Active Substance: MEMANTINE HYDROCHLORIDE
     Dates: end: 20170626

REACTIONS (14)
  - Speech disorder [None]
  - Atelectasis [None]
  - Hypotension [None]
  - Decreased appetite [None]
  - Cough [None]
  - Pyrexia [None]
  - Malignant pleural effusion [None]
  - Sepsis [None]
  - Dyspnoea [None]
  - Pericardial effusion [None]
  - Metastases to lung [None]
  - Malignant neoplasm progression [None]
  - Heart rate increased [None]
  - Empyema [None]

NARRATIVE: CASE EVENT DATE: 20170623
